FAERS Safety Report 25634367 (Version 2)
Quarter: 2025Q3

REPORT INFORMATION
  Report Type: Spontaneous
  Country: JP (occurrence: JP)
  Receive Date: 20250801
  Receipt Date: 20250814
  Transmission Date: 20251021
  Serious: Yes (Other)
  Sender: ALEXION PHARMACEUTICALS
  Company Number: JP-ASTRAZENECA-202507JPN027718JP

PATIENT
  Age: 58 Year
  Sex: Male

DRUGS (4)
  1. IMFINZI [Suspect]
     Active Substance: DURVALUMAB
     Indication: Non-small cell lung cancer
     Route: 065
  2. IMJUDO [Suspect]
     Active Substance: TREMELIMUMAB\TREMELIMUMAB-ACTL
     Indication: Non-small cell lung cancer
     Route: 065
  3. ETODOLAC [Concomitant]
     Active Substance: ETODOLAC
  4. EPERISONE [Concomitant]
     Active Substance: EPERISONE

REACTIONS (2)
  - Adrenal insufficiency [Unknown]
  - Neuropathy peripheral [Unknown]
